FAERS Safety Report 19986177 (Version 1)
Quarter: 2021Q4

REPORT INFORMATION
  Report Type: Spontaneous
  Country: US (occurrence: US)
  Receive Date: 20211022
  Receipt Date: 20211022
  Transmission Date: 20220303
  Serious: No
  Sender: FDA-Public Use
  Company Number: US-MATRIXX INITIATIVES, INC.-2120888

PATIENT
  Age: 34 Year
  Sex: Female
  Weight: 127.27 kg

DRUGS (2)
  1. ZICAM INTENSE SINUS RELIEF [Suspect]
     Active Substance: OXYMETAZOLINE HYDROCHLORIDE
     Indication: Nasopharyngitis
     Route: 045
     Dates: start: 20211021, end: 20211021
  2. UNSPECIFIED INGREDIENT [Concomitant]
     Active Substance: UNSPECIFIED INGREDIENT

REACTIONS (2)
  - Anosmia [None]
  - Ageusia [None]
